FAERS Safety Report 7148117-5 (Version None)
Quarter: 2010Q4

REPORT INFORMATION
  Report Type: 
  Country: None (occurrence: None)
  Receive Date: 20101209
  Receipt Date: 20101202
  Transmission Date: 20110411
  Serious: Yes (Other)
  Sender: FDA-Public Use
  Company Number: SE-PFIZER INC-2010130922

PATIENT
  Age: 65 Year
  Sex: Female
  Weight: 67 kg

DRUGS (1)
  1. TERRA-CORTRIL [Suspect]
     Indication: ECZEMA
     Dosage: 3 DROPS 3/TIMES DAILY
     Dates: start: 20101008

REACTIONS (1)
  - HYPOACUSIS [None]
